FAERS Safety Report 4450771-3 (Version None)
Quarter: 2004Q3

REPORT INFORMATION
  Report Type: 
  Country: None (occurrence: None)
  Receive Date: 20040914
  Receipt Date: 20040914
  Transmission Date: 20050211
  Serious: Yes (Life-Threatening, Hospitalization, Disabling)
  Sender: FDA-Public Use
  Company Number: None

PATIENT
  Age: 51 Year
  Sex: Male
  Weight: 122.4712 kg

DRUGS (8)
  1. PEGASYS [Suspect]
     Indication: DEHYDRATION
     Dosage: 1X/WEEK  INTRAMUSCULAR
     Route: 030
     Dates: start: 20040326, end: 20040730
  2. PEGASYS [Suspect]
     Indication: PNEUMONIA
     Dosage: 1X/WEEK  INTRAMUSCULAR
     Route: 030
     Dates: start: 20040326, end: 20040730
  3. PEGASYS [Suspect]
     Indication: RENAL FAILURE
     Dosage: 1X/WEEK  INTRAMUSCULAR
     Route: 030
     Dates: start: 20040326, end: 20040730
  4. PEGASYS [Suspect]
     Indication: SEPSIS
     Dosage: 1X/WEEK  INTRAMUSCULAR
     Route: 030
     Dates: start: 20040326, end: 20040730
  5. COPEGUS [Suspect]
     Indication: DEHYDRATION
     Dosage: COPEGUS  3X/DAY  ORAL
     Route: 048
     Dates: start: 20040326, end: 20040806
  6. COPEGUS [Suspect]
     Indication: PNEUMONIA
     Dosage: COPEGUS  3X/DAY  ORAL
     Route: 048
     Dates: start: 20040326, end: 20040806
  7. COPEGUS [Suspect]
     Indication: RENAL FAILURE
     Dosage: COPEGUS  3X/DAY  ORAL
     Route: 048
     Dates: start: 20040326, end: 20040806
  8. COPEGUS [Suspect]
     Indication: SEPSIS
     Dosage: COPEGUS  3X/DAY  ORAL
     Route: 048
     Dates: start: 20040326, end: 20040806

REACTIONS (10)
  - DEHYDRATION [None]
  - DRUG TOXICITY [None]
  - IMMUNE SYSTEM DISORDER [None]
  - INFECTION [None]
  - INFLUENZA LIKE ILLNESS [None]
  - PNEUMONIA [None]
  - PYREXIA [None]
  - RENAL FAILURE [None]
  - SEPSIS [None]
  - WHITE BLOOD CELL COUNT DECREASED [None]
